FAERS Safety Report 9046855 (Version 1)
Quarter: 2013Q1

REPORT INFORMATION
  Report Type: Spontaneous
  Country: US (occurrence: US)
  Receive Date: 20130204
  Receipt Date: 20130204
  Transmission Date: 20140127
  Serious: No
  Sender: FDA-Public Use
  Company Number: US-009507513-1301USA013641

PATIENT
  Sex: 0

DRUGS (1)
  1. SYLATRON [Suspect]
     Indication: MALIGNANT MELANOMA STAGE III
     Dosage: UNK
     Route: 058
     Dates: start: 201201, end: 201212

REACTIONS (1)
  - Orbital oedema [Unknown]
